FAERS Safety Report 7770626-6 (Version None)
Quarter: 2011Q3

REPORT INFORMATION
  Report Type: 
  Country: None (occurrence: None)
  Receive Date: 20110922
  Receipt Date: 20110915
  Transmission Date: 20111222
  Serious: Yes (Other)
  Sender: FDA-Public Use
  Company Number: AT-AMGEN-AUTSP2011047725

PATIENT
  Age: 75 Year
  Sex: Female
  Weight: 67 kg

DRUGS (3)
  1. PROLIA [Suspect]
     Indication: OSTEOPOROSIS
     Dosage: 60 MG, UNK
     Route: 058
     Dates: start: 20110714
  2. HYDROXYUREA [Concomitant]
     Indication: POLYCYTHAEMIA
     Dosage: 500 MG, UNK
     Route: 048
     Dates: start: 20010101
  3. ROCALTROL [Concomitant]
     Indication: RENAL FAILURE
     Dosage: 0.25 MUG, UNK
     Dates: start: 20080101

REACTIONS (1)
  - APHTHOUS STOMATITIS [None]
